FAERS Safety Report 9200641 (Version 3)
Quarter: 2014Q1

REPORT INFORMATION
  Report Type: Spontaneous
  Country: US (occurrence: US)
  Receive Date: 20130329
  Receipt Date: 20140306
  Transmission Date: 20141002
  Serious: Yes (Hospitalization, Disabling, Other)
  Sender: FDA-Public Use
  Company Number: US-009507513-1303USA011386

PATIENT
  Sex: Male
  Weight: 91.61 kg

DRUGS (1)
  1. PROPECIA [Suspect]
     Indication: ANDROGENETIC ALOPECIA
     Dosage: 1 MG, QD
     Route: 048
     Dates: start: 20050205, end: 20060531

REACTIONS (20)
  - Pancreatitis [Not Recovered/Not Resolved]
  - Limb injury [Not Recovered/Not Resolved]
  - Cognitive disorder [Not Recovered/Not Resolved]
  - Sexual dysfunction [Unknown]
  - Erectile dysfunction [Unknown]
  - Cellulitis [Unknown]
  - Back pain [Unknown]
  - Drug hypersensitivity [Unknown]
  - Chronic hepatitis C [Unknown]
  - Sensation of pressure [Unknown]
  - Pain [Unknown]
  - Back pain [Unknown]
  - Osteoarthritis [Unknown]
  - Hypertension [Unknown]
  - Spinal osteoarthritis [Unknown]
  - Renal cyst [Unknown]
  - Scoliosis [Unknown]
  - Lipase increased [Unknown]
  - Pancreatic abscess [Unknown]
  - Chest pain [Unknown]
